FAERS Safety Report 5960965-3 (Version None)
Quarter: 2008Q4

REPORT INFORMATION
  Report Type: 
  Country: None (occurrence: None)
  Receive Date: 20081119
  Receipt Date: 20081103
  Transmission Date: 20090506
  Serious: Yes (Hospitalization, Other)
  Sender: FDA-Public Use
  Company Number: 2008US000006

PATIENT

DRUGS (1)
  1. ENTEREG [Suspect]
     Dosage: 12 MG; PO
     Route: 048
     Dates: start: 20080101, end: 20080101

REACTIONS (1)
  - POST PROCEDURAL MYOCARDIAL INFARCTION [None]
